FAERS Safety Report 23480307 (Version 1)
Quarter: 2024Q1

REPORT INFORMATION
  Report Type: Report from Study
  Country: US (occurrence: US)
  Receive Date: 20240205
  Receipt Date: 20240205
  Transmission Date: 20240410
  Serious: Yes (Other)
  Sender: FDA-Public Use
  Company Number: US-ORG100014127-2023000869

PATIENT
  Age: 30 Year
  Sex: Female

DRUGS (1)
  1. LYSODREN [Suspect]
     Active Substance: MITOTANE
     Indication: Adrenal gland cancer
     Dosage: 500MG: 03 TABLETS (MORNING), 03 TABLETS (NOON) AND 03 TABLETS (EVENING)
     Route: 048
     Dates: start: 20230421

REACTIONS (1)
  - Adrenal insufficiency [Unknown]
